FAERS Safety Report 14938325 (Version 5)
Quarter: 2018Q3

REPORT INFORMATION
  Report Type: Report from Study
  Country: JP (occurrence: JP)
  Receive Date: 20180525
  Receipt Date: 20180918
  Transmission Date: 20181010
  Serious: Yes (Death, Life-Threatening, Other)
  Sender: FDA-Public Use
  Company Number: JP-JNJFOC-20180530613

PATIENT
  Age: 67 Year
  Sex: Female
  Weight: 65 kg

DRUGS (16)
  1. DARZALEX [Suspect]
     Active Substance: DARATUMUMAB
     Indication: PLASMA CELL MYELOMA
     Route: 041
     Dates: start: 20171211, end: 20171218
  2. OXINORM [Concomitant]
     Indication: CANCER PAIN
     Route: 048
     Dates: start: 20171212, end: 20171218
  3. MORPHINE HYDROCHLORIDE [Concomitant]
     Active Substance: MORPHINE HYDROCHLORIDE
     Indication: CANCER PAIN
     Route: 054
     Dates: start: 20171218, end: 20171218
  4. FENTOS [Concomitant]
     Active Substance: FENTANYL
     Indication: TUMOUR LYSIS SYNDROME
     Route: 062
  5. DEXAMETHASONE. [Concomitant]
     Active Substance: DEXAMETHASONE
     Indication: PLASMA CELL MYELOMA
     Route: 065
     Dates: start: 20171212, end: 20171212
  6. FILGRASTIM [Concomitant]
     Active Substance: FILGRASTIM
     Indication: NEUTROPENIA
     Route: 065
     Dates: start: 20171213, end: 20171217
  7. FIRSTCIN [Concomitant]
     Active Substance: CEFOZOPRAN HYDROCHLORIDE
     Indication: PYREXIA
     Route: 042
     Dates: start: 20171218, end: 20171224
  8. MIDAZOLAM [Concomitant]
     Active Substance: MIDAZOLAM HYDROCHLORIDE
     Indication: CANCER PAIN
     Route: 065
  9. FENTANYL. [Concomitant]
     Active Substance: FENTANYL
     Indication: PLASMA CELL MYELOMA
     Route: 065
     Dates: start: 20171221, end: 20171224
  10. HYDROCORTISONE SODIUM PHOSPHATE [Concomitant]
     Active Substance: HYDROCORTISONE SODIUM PHOSPHATE
     Indication: PYREXIA
     Route: 065
     Dates: start: 20171221, end: 20171223
  11. BETAMETHASONE. [Concomitant]
     Active Substance: BETAMETHASONE
     Indication: PLASMA CELL MYELOMA
     Route: 065
     Dates: start: 20171218, end: 20171221
  12. METOCLOPRAMIDE. [Concomitant]
     Active Substance: METOCLOPRAMIDE
     Indication: NAUSEA
     Dates: start: 20171211, end: 20171211
  13. DEXAMETHASONE. [Concomitant]
     Active Substance: DEXAMETHASONE
     Indication: PLASMA CELL MYELOMA
     Route: 065
     Dates: start: 20171127, end: 20171205
  14. ACELIO [Concomitant]
     Active Substance: ACETAMINOPHEN
     Indication: PYREXIA
     Route: 042
     Dates: start: 20171219, end: 20171224
  15. VELCADE [Suspect]
     Active Substance: BORTEZOMIB
     Indication: PLASMA CELL MYELOMA
     Route: 058
     Dates: start: 20171211
  16. DEXAMETHASONE. [Concomitant]
     Active Substance: DEXAMETHASONE
     Indication: PLASMA CELL MYELOMA
     Route: 065
     Dates: start: 20171211, end: 20171211

REACTIONS (10)
  - Disease progression [Fatal]
  - Acute kidney injury [Not Recovered/Not Resolved]
  - Nausea [Recovered/Resolved]
  - Platelet count decreased [Not Recovered/Not Resolved]
  - Tumour lysis syndrome [Not Recovered/Not Resolved]
  - Pyrexia [Not Recovered/Not Resolved]
  - Infusion related reaction [Recovered/Resolved]
  - Neutropenia [Not Recovered/Not Resolved]
  - Cancer pain [Not Recovered/Not Resolved]
  - Anaemia [Not Recovered/Not Resolved]

NARRATIVE: CASE EVENT DATE: 20171211
